FAERS Safety Report 5004026-9 (Version None)
Quarter: 2006Q2

REPORT INFORMATION
  Report Type: 
  Country: None (occurrence: None)
  Receive Date: 20060515
  Receipt Date: 20060515
  Transmission Date: 20061013
  Serious: Yes (Hospitalization)
  Sender: FDA-Public Use
  Company Number: None

PATIENT
  Age: 34 Year
  Sex: Female
  Weight: 65.7716 kg

DRUGS (1)
  1. AMBIEN CR [Suspect]
     Indication: INSOMNIA
     Dosage: 1 TABLET AT NIGHT
     Dates: start: 20060301, end: 20060301

REACTIONS (3)
  - AGGRESSION [None]
  - AMNESIA [None]
  - HALLUCINATION [None]
